FAERS Safety Report 8089742-7 (Version None)
Quarter: 2012Q1

REPORT INFORMATION
  Report Type: 
  Country: None (occurrence: None)
  Receive Date: 20120128
  Receipt Date: 20110713
  Transmission Date: 20120608
  Serious: No
  Sender: FDA-Public Use
  Company Number: US-ABBOTT-11P-163-0838604-00

PATIENT
  Age: 54 Year
  Sex: Male

DRUGS (4)
  1. XANAX [Concomitant]
     Indication: HYPERTENSION
  2. ASPIRIN [Concomitant]
     Indication: PROPHYLAXIS
  3. HUMIRA [Suspect]
     Indication: PSORIASIS
     Dates: start: 20110702
  4. XANAX [Concomitant]
     Indication: ANXIETY

REACTIONS (1)
  - INJECTION SITE PAIN [None]
